FAERS Safety Report 6622123-9 (Version None)
Quarter: 2010Q1

REPORT INFORMATION
  Report Type: 
  Country: None (occurrence: None)
  Receive Date: 20100303
  Receipt Date: 20100226
  Transmission Date: 20100710
  Serious: Yes (Death, Life-Threatening, Hospitalization)
  Sender: FDA-Public Use
  Company Number: 2010SP012552

PATIENT
  Age: 75 Year
  Sex: Male

DRUGS (6)
  1. INTEGRILIN [Suspect]
     Indication: DRUG USE FOR UNKNOWN INDICATION
     Dosage: IV
     Route: 042
  2. PLAVIX [Suspect]
     Indication: DRUG USE FOR UNKNOWN INDICATION
     Dosage: 75.0 MG;QD;PO ; 600.0 MG;ONCE;PO
     Route: 048
  3. ASPIRIN [Concomitant]
  4. ENOXAPARIN SODIUM [Concomitant]
  5. HEPARIN SODIUM [Concomitant]
  6. PROTAMINE SULFATE [Concomitant]

REACTIONS (8)
  - CARDIOGENIC SHOCK [None]
  - HAEMATOCRIT DECREASED [None]
  - HAEMOGLOBIN DECREASED [None]
  - ISCHAEMIC HEPATITIS [None]
  - MULTI-ORGAN FAILURE [None]
  - PLATELET COUNT DECREASED [None]
  - POST PROCEDURAL HAEMORRHAGE [None]
  - SEPSIS [None]
